FAERS Safety Report 15547327 (Version 3)
Quarter: 2019Q1

REPORT INFORMATION
  Report Type: Spontaneous
  Country: DE (occurrence: DE)
  Receive Date: 20181024
  Receipt Date: 20190115
  Transmission Date: 20190417
  Serious: Yes (Death, Other)
  Sender: FDA-Public Use
  Company Number: DE-MYLANLABS-2018M1080026

PATIENT
  Age: 52 Year
  Sex: Male

DRUGS (8)
  1. IDARUBICIN [Suspect]
     Active Substance: IDARUBICIN
     Indication: ACUTE MYELOID LEUKAEMIA
     Dosage: 280 MG/M2, CYCLIC (DOUBLE-INDUCTION THERAPY (TWO CYCLES OF CHEMOTHERAPY 3 WEEKS APART))
     Route: 065
  2. IDARUBICIN [Suspect]
     Active Substance: IDARUBICIN
     Dosage: 280 MG/M2, Q3WK (DRUG INTERVAL DOSAGE UNIT NUMBER 1 CYCLICAL)
     Route: 065
  3. ETOPOSIDE. [Suspect]
     Active Substance: ETOPOSIDE
     Dosage: 1000 MG/M2, Q3WK (DRUG INTERVAL DOSAGE UNIT NUMBER 1 CYCLICAL)
     Route: 065
  4. PREDNISONE. [Suspect]
     Active Substance: PREDNISONE
     Indication: ACUTE MYELOID LEUKAEMIA
     Dosage: 250 MG/M2, CYCLIC (DOUBLE-INDUCTION THERAPY (TWO CYCLES OF CHEMOTHERAPY 3 WEEKS APART))
     Route: 065
  5. PREDNISONE. [Suspect]
     Active Substance: PREDNISONE
     Dosage: 250 MG/M2, Q3WK (DRUG INTERVAL DOSAGE UNIT NUMBER 1 CYCLICAL)
     Route: 065
  6. ETOPOSIDE. [Suspect]
     Active Substance: ETOPOSIDE
     Indication: ACUTE MYELOID LEUKAEMIA
     Dosage: 1000 MG/M2, CYCLIC (DOUBLE-INDUCTION THERAPY (TWO CYCLES OF CHEMOTHERAPY 3 WEEKS APART))
     Route: 065
  7. CYTARABINE. [Suspect]
     Active Substance: CYTARABINE
     Indication: ACUTE MYELOID LEUKAEMIA
     Dosage: 1300 MG/M2, CYCLIC (DOUBLE-INDUCTION THERAPY (TWO CYCLES OF CHEMOTHERAPY 3 WEEKS APART))
     Route: 065
  8. CYTARABINE. [Suspect]
     Active Substance: CYTARABINE
     Dosage: 1000 MG/M2, Q3WK (DRUG INTERVAL DOSAGE UNIT NUMBER 1 CYCLICAL)
     Route: 065

REACTIONS (5)
  - Pneumonia [Fatal]
  - Neutropenia [Unknown]
  - Thrombocytopenia [Unknown]
  - Pulmonary haemorrhage [Fatal]
  - Stenotrophomonas infection [Fatal]
